FAERS Safety Report 12570260 (Version 1)
Quarter: 2016Q3

REPORT INFORMATION
  Report Type: Spontaneous
  Country: US (occurrence: None)
  Receive Date: 20160718
  Receipt Date: 20160718
  Transmission Date: 20161109
  Serious: No
  Sender: FDA-Public Use
  Company Number: None

PATIENT
  Age: 49 Year
  Sex: Female
  Weight: 68.04 kg

DRUGS (5)
  1. VITAMIN [Concomitant]
     Active Substance: VITAMINS
  2. MINERAL [Concomitant]
  3. PREDNISONE. [Suspect]
     Active Substance: PREDNISONE
  4. MEDROL [Suspect]
     Active Substance: METHYLPREDNISOLONE
     Indication: PLANTAR FASCIITIS
     Dosage: TAPER PK
     Route: 048
  5. ZOLOFT [Concomitant]
     Active Substance: SERTRALINE HYDROCHLORIDE

REACTIONS (4)
  - Pain in extremity [None]
  - Bone pain [None]
  - Sciatica [None]
  - Arthralgia [None]

NARRATIVE: CASE EVENT DATE: 20160714
